FAERS Safety Report 7536037-3 (Version None)
Quarter: 2011Q2

REPORT INFORMATION
  Report Type: 
  Country: None (occurrence: None)
  Receive Date: 20110609
  Receipt Date: 20110607
  Transmission Date: 20111010
  Serious: No
  Sender: FDA-Public Use
  Company Number: US-PFIZER INC-2011125015

PATIENT
  Sex: Female

DRUGS (6)
  1. EFFEXOR [Concomitant]
     Dosage: UNK
  2. IBUPROFEN [Concomitant]
     Dosage: UNK
  3. CHANTIX [Suspect]
     Dosage: UNK
     Dates: start: 20110101
  4. SPIRIVA [Concomitant]
     Dosage: UNK
  5. ALBUTEROL SULFATE AUTOHALER [Concomitant]
     Dosage: UNK
  6. COMBIVENT [Concomitant]
     Dosage: UNK

REACTIONS (5)
  - SLEEP DISORDER [None]
  - CONSTIPATION [None]
  - FLATULENCE [None]
  - VOMITING [None]
  - NAUSEA [None]
